FAERS Safety Report 9283634 (Version 1)
Quarter: 2013Q2

REPORT INFORMATION
  Report Type: Report from Study
  Country: AR (occurrence: AR)
  Receive Date: 20130510
  Receipt Date: 20130510
  Transmission Date: 20140414
  Serious: Yes (Other)
  Sender: FDA-Public Use
  Company Number: PHHY2013AR046537

PATIENT
  Sex: Female

DRUGS (3)
  1. EXFORGE [Suspect]
     Indication: HYPERTENSION
     Dosage: 1 DF (160/5MG) DAILY
     Route: 048
     Dates: start: 201010
  2. ATENOLOL [Concomitant]
     Dosage: UNK UKN, UNK
  3. PLAVIX [Concomitant]
     Dosage: UNK UKN, UNK

REACTIONS (2)
  - Arterial occlusive disease [Unknown]
  - Tachycardia [Unknown]
